FAERS Safety Report 4782654-3 (Version None)
Quarter: 2005Q3

REPORT INFORMATION
  Report Type: 
  Country: None (occurrence: None)
  Receive Date: 20050929
  Receipt Date: 20050610
  Transmission Date: 20060218
  Serious: No
  Sender: FDA-Public Use
  Company Number: 407584

PATIENT
  Age: 82 Year
  Sex: Female

DRUGS (4)
  1. COREG [Suspect]
     Indication: HYPERTENSION
     Dosage: 3.125MG TWICE PER DAY
     Route: 048
     Dates: start: 20050309
  2. DIOVAN [Concomitant]
  3. LASIX [Concomitant]
  4. ACCOLATE [Concomitant]

REACTIONS (1)
  - MUSCLE TIGHTNESS [None]
